FAERS Safety Report 5578069-0 (Version None)
Quarter: 2007Q4

REPORT INFORMATION
  Report Type: 
  Country: None (occurrence: None)
  Receive Date: 20071231
  Receipt Date: 20071217
  Transmission Date: 20080405
  Serious: Yes (Hospitalization)
  Sender: FDA-Public Use
  Company Number: DK-GENENTECH-253331

PATIENT
  Sex: Female

DRUGS (4)
  1. BEVACIZUMAB [Suspect]
     Indication: GASTROINTESTINAL CARCINOMA
     Dosage: 560 MG, Q2W
     Route: 042
     Dates: start: 20060922
  2. ERLOTINIB [Suspect]
     Indication: GASTROINTESTINAL CARCINOMA
     Dosage: 150 MG, QD
     Route: 048
     Dates: start: 20060922
  3. BUPRENORPHINE HCL [Concomitant]
     Indication: DRUG USE FOR UNKNOWN INDICATION
     Dates: start: 20070115
  4. PREDNISOLONE [Concomitant]
     Indication: DRUG USE FOR UNKNOWN INDICATION
     Dates: start: 20061212

REACTIONS (4)
  - CHILLS [None]
  - INFECTION [None]
  - MALAISE [None]
  - PYREXIA [None]
